FAERS Safety Report 7041173-4 (Version None)
Quarter: 2010Q4

REPORT INFORMATION
  Report Type: 
  Country: None (occurrence: None)
  Receive Date: 20101013
  Receipt Date: 20101001
  Transmission Date: 20110411
  Serious: Yes (Other)
  Sender: FDA-Public Use
  Company Number: DE-JNJFOC-20100908415

PATIENT
  Age: 37 Year
  Sex: Male
  Weight: 72 kg

DRUGS (8)
  1. REMICADE [Suspect]
     Indication: COLITIS ULCERATIVE
     Route: 042
  2. REMICADE [Suspect]
     Route: 042
  3. REMICADE [Suspect]
     Indication: CROHN'S DISEASE
     Route: 042
  4. REMICADE [Suspect]
     Route: 042
  5. PREDNISOLONE [Concomitant]
  6. MEZAVANT [Concomitant]
  7. CLEMASTINE FUMARATE [Concomitant]
     Indication: PREMEDICATION
     Dosage: DOSE: 1 AMPULE
  8. PREDNISOLONE SODIUM SUCCINATE INJ [Concomitant]
     Indication: PREMEDICATION
     Route: 042

REACTIONS (17)
  - ABDOMINAL PAIN [None]
  - BACK PAIN [None]
  - BRONCHOSPASM [None]
  - CHEST DISCOMFORT [None]
  - CHEST PAIN [None]
  - DIARRHOEA [None]
  - DYSPNOEA [None]
  - ERYTHEMA [None]
  - FACE OEDEMA [None]
  - HYPOTENSION [None]
  - INFUSION RELATED REACTION [None]
  - NAUSEA [None]
  - OROPHARYNGEAL PAIN [None]
  - PALPITATIONS [None]
  - RASH [None]
  - TACHYCARDIA [None]
  - VOMITING [None]
